FAERS Safety Report 8354601-9 (Version None)
Quarter: 2012Q2

REPORT INFORMATION
  Report Type: 
  Country: None (occurrence: None)
  Receive Date: 20120510
  Receipt Date: 20120502
  Transmission Date: 20120825
  Serious: Yes (Hospitalization)
  Sender: FDA-Public Use
  Company Number: JPI-P-020889

PATIENT
  Age: 14 Year
  Sex: Male

DRUGS (6)
  1. LEVOCETIRIZINE DIHYDROCHLORIDE [Concomitant]
  2. XYREM [Suspect]
     Indication: CATAPLEXY
     Dosage: ORAL ; 9 GM (4.5 GM,2 IN 1 D),ORAL
     Route: 048
     Dates: start: 20110719
  3. METHYLPHENIDATE HCL [Suspect]
     Indication: ENERGY INCREASED
     Dosage: (5 MG),ORAL
     Route: 048
     Dates: start: 20120326, end: 20120326
  4. LISDEXAMFETAMINE DIMESYLATE [Concomitant]
  5. VENLAFAXINE HYDROCHLORIDE [Suspect]
     Indication: CATAPLEXY
     Dosage: (37.5 MG),ORAL ; (37.5 MG),ORAL
     Route: 048
     Dates: end: 20120326
  6. VENLAFAXINE HYDROCHLORIDE [Suspect]
     Indication: CATAPLEXY
     Dosage: (37.5 MG),ORAL ; (37.5 MG),ORAL
     Route: 048
     Dates: start: 20120329

REACTIONS (12)
  - AGGRESSION [None]
  - DISEASE RECURRENCE [None]
  - PRURITUS [None]
  - CATAPLEXY [None]
  - INSOMNIA [None]
  - SUICIDAL IDEATION [None]
  - FEELING ABNORMAL [None]
  - ARTHROPOD INFESTATION [None]
  - POOR QUALITY SLEEP [None]
  - CONVULSION [None]
  - DRUG INEFFECTIVE [None]
  - DRUG HYPERSENSITIVITY [None]
